FAERS Safety Report 17527605 (Version 1)
Quarter: 2020Q1

REPORT INFORMATION
  Report Type: Spontaneous
  Country: US (occurrence: US)
  Receive Date: 20200311
  Receipt Date: 20200311
  Transmission Date: 20200409
  Serious: No
  Sender: FDA-Public Use
  Company Number: US-JNJFOC-20200313632

PATIENT
  Age: 23 Year
  Sex: Male
  Weight: 68.1 kg

DRUGS (1)
  1. INVEGA [Suspect]
     Active Substance: PALIPERIDONE
     Indication: PRODUCT USED FOR UNKNOWN INDICATION
     Route: 048

REACTIONS (5)
  - Exercise lack of [Recovering/Resolving]
  - Decreased interest [Recovering/Resolving]
  - Vision blurred [Recovering/Resolving]
  - Staring [Recovering/Resolving]
  - Fatigue [Recovering/Resolving]
